FAERS Safety Report 17199064 (Version 1)
Quarter: 2019Q4

REPORT INFORMATION
  Report Type: Spontaneous
  Country: US (occurrence: US)
  Receive Date: 20191225
  Receipt Date: 20191225
  Transmission Date: 20200122
  Serious: Yes (Hospitalization, Other)
  Sender: FDA-Public Use
  Company Number: US-BAUSCH-BL-2019-065396

PATIENT
  Age: 4 Month
  Sex: Male

DRUGS (7)
  1. DEXMETHASONE [Suspect]
     Active Substance: DEXAMETHASONE
     Dosage: WEAN FROM DAY-105 TO DAY-50
     Route: 065
  2. ANAKINRA [Concomitant]
     Active Substance: ANAKINRA
     Indication: HAEMOPHAGOCYTIC LYMPHOHISTIOCYTOSIS
  3. ANAKINRA [Concomitant]
     Active Substance: ANAKINRA
  4. ANAKINRA [Concomitant]
     Active Substance: ANAKINRA
  5. DEXMETHASONE [Suspect]
     Active Substance: DEXAMETHASONE
     Indication: HAEMOPHAGOCYTIC LYMPHOHISTIOCYTOSIS
     Route: 065
  6. IMMUNOGLOBULINS [Concomitant]
     Indication: PRODUCT USED FOR UNKNOWN INDICATION
     Route: 042
  7. TACROLIMUS. [Concomitant]
     Active Substance: TACROLIMUS
     Indication: HAEMOPHAGOCYTIC LYMPHOHISTIOCYTOSIS

REACTIONS (1)
  - Intracranial pressure increased [Unknown]
